FAERS Safety Report 15559261 (Version 8)
Quarter: 2019Q1

REPORT INFORMATION
  Report Type: Report from Study
  Country: US (occurrence: US)
  Receive Date: 20181029
  Receipt Date: 20190319
  Transmission Date: 20190417
  Serious: Yes (Hospitalization)
  Sender: FDA-Public Use
  Company Number: US-B.I. PHARMACEUTICALS,INC./RIDGEFIELD-2018-BI-051976

PATIENT
  Sex: Male

DRUGS (1)
  1. OFEV [Suspect]
     Active Substance: NINTEDANIB
     Indication: IDIOPATHIC PULMONARY FIBROSIS
     Route: 048
     Dates: start: 20180809

REACTIONS (12)
  - Haematochezia [Unknown]
  - Productive cough [Unknown]
  - Abdominal pain upper [Recovered/Resolved]
  - Haemorrhage [Unknown]
  - Pneumonia [Unknown]
  - Respiratory syncytial virus infection [Unknown]
  - Abdominal discomfort [Unknown]
  - Dyspnoea [Unknown]
  - Somnolence [Unknown]
  - Ear infection [Unknown]
  - Abdominal pain upper [Recovering/Resolving]
  - Oxygen saturation decreased [Unknown]
